FAERS Safety Report 6298039-7 (Version None)
Quarter: 2009Q3

REPORT INFORMATION
  Report Type: 
  Country: None (occurrence: None)
  Receive Date: 20090805
  Receipt Date: 20090728
  Transmission Date: 20100115
  Serious: Yes (Life-Threatening, Hospitalization)
  Sender: FDA-Public Use
  Company Number: US-GILEAD-2009-0023324

PATIENT
  Sex: Female
  Weight: 53.118 kg

DRUGS (10)
  1. LETAIRIS [Suspect]
     Indication: PULMONARY ARTERIAL HYPERTENSION
     Route: 048
     Dates: start: 20081226
  2. COUMADIN [Concomitant]
  3. NORVASC [Concomitant]
  4. CRESTOR [Concomitant]
  5. ACTONEL [Concomitant]
  6. PREDNISONE TAB [Concomitant]
  7. PREVACID [Concomitant]
  8. COENZYME Q10 [Concomitant]
  9. MULTI-VITAMIN [Concomitant]
  10. FISH OIL [Concomitant]

REACTIONS (6)
  - BLOOD PRESSURE DIASTOLIC DECREASED [None]
  - BRAIN NATRIURETIC PEPTIDE INCREASED [None]
  - HAEMOPTYSIS [None]
  - HEART RATE INCREASED [None]
  - PNEUMONIA [None]
  - RESPIRATORY FAILURE [None]
